FAERS Safety Report 8339675 (Version 2)
Quarter: 2012Q4

REPORT INFORMATION
  Report Type: 
  Country: IL (occurrence: IL)
  Receive Date: 20120117
  Receipt Date: 20121001
  Transmission Date: 20130627
  Serious: Yes (Other)
  Sender: FDA-Public Use
  Company Number: IL-MPIJNJ-2012-00154

PATIENT

DRUGS (4)
  1. VELCADE [Suspect]
     Indication: PRODUCT USED FOR UNKNOWN INDICATION
     Route: 042
  2. CYCLOPHOSPHAMIDE [Concomitant]
  3. DEXAMETHASONE [Concomitant]
  4. MABTHERA [Concomitant]

REACTIONS (1)
  - Scrotal pain [Recovered/Resolved]
